FAERS Safety Report 24583864 (Version 1)
Quarter: 2024Q4

REPORT INFORMATION
  Report Type: Report from Study
  Country: FR (occurrence: FR)
  Receive Date: 20241106
  Receipt Date: 20241106
  Transmission Date: 20250115
  Serious: Yes (Other)
  Sender: RANBAXY
  Company Number: FR-SUN PHARMACEUTICAL INDUSTRIES LTD-2024R1-477502

PATIENT
  Age: 28 Year
  Sex: Female

DRUGS (3)
  1. HYDROXYCHLOROQUINE [Suspect]
     Active Substance: HYDROXYCHLOROQUINE
     Indication: Cytopenia
     Dosage: UNK
     Route: 065
  2. PREDNISONE [Suspect]
     Active Substance: PREDNISONE
     Indication: Cytopenia
     Dosage: UNK
     Route: 065
  3. SIROLIMUS [Suspect]
     Active Substance: SIROLIMUS
     Indication: Cytopenia
     Dosage: 60 MILLIGRAM, DAILY
     Route: 065

REACTIONS (1)
  - Therapy partial responder [Unknown]
